FAERS Safety Report 7132785-8 (Version None)
Quarter: 2010Q4

REPORT INFORMATION
  Report Type: 
  Country: None (occurrence: None)
  Receive Date: 20101202
  Receipt Date: 20101122
  Transmission Date: 20110411
  Serious: No
  Sender: FDA-Public Use
  Company Number: US-PFIZER INC-2010154955

PATIENT
  Sex: Male

DRUGS (2)
  1. DEPO-TESTOSTERONE [Suspect]
     Indication: BLOOD TESTOSTERONE DECREASED
     Dosage: 200 MG, EVERY 14 DAYS
  2. DEPO-TESTOSTERONE [Suspect]
     Dosage: 100 MG, EVERY 14 DAYS

REACTIONS (4)
  - AGITATION [None]
  - ANXIETY [None]
  - HEART RATE INCREASED [None]
  - INSOMNIA [None]
